FAERS Safety Report 9251320 (Version 2)
Quarter: 2014Q1

REPORT INFORMATION
  Report Type: Spontaneous
  Country: US (occurrence: None)
  Receive Date: 20130305
  Receipt Date: 20140306
  Transmission Date: 20141002
  Serious: Yes (Other)
  Sender: FDA-Public Use
  Company Number: 163-21880-12090366

PATIENT
  Age: 65 Year
  Sex: Male

DRUGS (5)
  1. REVLIMID (LENALIDOMIDE) (10 MILLIGRAM, CAPSULES) [Suspect]
     Indication: PLASMA CELL MYELOMA
     Dosage: 25MG, 1 IN 1 D, PO
     Route: 048
     Dates: start: 200707
  2. LOTENSIN (BENAZEPRIL HYDROCHLORIDE) [Concomitant]
  3. SYNTHROID (LEVOTHYROXINE SODIUM) [Concomitant]
  4. OXYCODONE [Concomitant]
  5. VELCADE (BORTEZOMIB) [Concomitant]

REACTIONS (4)
  - Plasma cell myeloma [None]
  - Laboratory test abnormal [None]
  - Drug ineffective [None]
  - Drug intolerance [None]
